FAERS Safety Report 4423086-7 (Version None)
Quarter: 2004Q3

REPORT INFORMATION
  Report Type: 
  Country: None (occurrence: None)
  Receive Date: 20040810
  Receipt Date: 20040810
  Transmission Date: 20050211
  Serious: No
  Sender: FDA-Public Use
  Company Number: None

PATIENT
  Sex: Male
  Weight: 97 kg

DRUGS (6)
  1. SPIRONOLACTONE [Suspect]
     Indication: CARDIAC FAILURE
     Dosage: 12.5 MG QD ORAL
     Route: 048
     Dates: start: 20030905, end: 20040804
  2. SIMVASTATIN [Concomitant]
  3. ALENDRONATE SODIUM [Concomitant]
  4. LISINOPRIL [Concomitant]
  5. RANITIDINE [Concomitant]
  6. LABETALOL HCL [Concomitant]

REACTIONS (2)
  - GYNAECOMASTIA [None]
  - NIPPLE PAIN [None]
